FAERS Safety Report 4505080-0 (Version None)
Quarter: 2004Q4

REPORT INFORMATION
  Report Type: 
  Country: None (occurrence: None)
  Receive Date: 20041117
  Receipt Date: 20041117
  Transmission Date: 20050328
  Serious: Yes (Hospitalization)
  Sender: FDA-Public Use
  Company Number: None

PATIENT
  Age: 66 Year
  Sex: Male

DRUGS (10)
  1. DIGOXIN [Suspect]
     Indication: CARDIAC FAILURE CONGESTIVE
     Dosage: 0.25 MG QD
     Dates: start: 20040812
  2. LISINOPRIL [Suspect]
     Indication: CARDIAC FAILURE CONGESTIVE
     Dosage: 20 MG QD
     Dates: start: 19960801
  3. LISINOPRIL [Suspect]
     Indication: DIABETES MELLITUS
     Dosage: 20 MG QD
     Dates: start: 19960801
  4. INSULIN NPH + REG [Concomitant]
  5. METOPROLOL [Concomitant]
  6. METOCLOPRAMIDE [Concomitant]
  7. ZOCOR [Concomitant]
  8. PROCHLORPERAZINE [Concomitant]
  9. GLYBURIDE [Concomitant]
  10. FLUOXETINE [Concomitant]

REACTIONS (3)
  - ATRIOVENTRICULAR BLOCK FIRST DEGREE [None]
  - HYPERKALAEMIA [None]
  - THERAPEUTIC AGENT TOXICITY [None]
